FAERS Safety Report 7375147-0 (Version None)
Quarter: 2011Q1

REPORT INFORMATION
  Report Type: 
  Country: None (occurrence: None)
  Receive Date: 20110315
  Receipt Date: 20110228
  Transmission Date: 20110831
  Serious: Yes (Other)
  Sender: FDA-Public Use
  Company Number: 2011001024

PATIENT
  Age: 72 Year
  Sex: Female

DRUGS (6)
  1. TARCEVA [Suspect]
     Indication: LUNG NEOPLASM MALIGNANT
     Dosage: ORAL
     Route: 048
     Dates: start: 20101226, end: 20110116
  2. PRILOSEC [Concomitant]
  3. METFORMIN HCL [Concomitant]
  4. CELEBREX [Concomitant]
  5. COUMADIN [Concomitant]
  6. NEURONTIN [Concomitant]

REACTIONS (5)
  - CULTURE POSITIVE [None]
  - SIMPLEX VIRUS TEST POSITIVE [None]
  - EXFOLIATIVE RASH [None]
  - CONJUNCTIVITIS [None]
  - DIARRHOEA [None]
